FAERS Safety Report 10866378 (Version 1)
Quarter: 2015Q1

REPORT INFORMATION
  Report Type: Spontaneous
  Country: US (occurrence: None)
  Receive Date: 20150219
  Receipt Date: 20150219
  Transmission Date: 20150721
  Serious: No
  Sender: FDA-Public Use
  Company Number: None

PATIENT
  Age: 41 Year
  Sex: Male
  Weight: 107.3 kg

DRUGS (2)
  1. CYTARABINE. [Suspect]
     Active Substance: CYTARABINE
     Dates: end: 20140815
  2. IDARUBICIN [Suspect]
     Active Substance: IDARUBICIN
     Dates: end: 20140814

REACTIONS (2)
  - Pancytopenia [None]
  - Blood phosphorus decreased [None]

NARRATIVE: CASE EVENT DATE: 20140901
